FAERS Safety Report 9402527 (Version 2)
Quarter: 2013Q3

REPORT INFORMATION
  Report Type: Spontaneous
  Country: CN (occurrence: CN)
  Receive Date: 20130716
  Receipt Date: 20130820
  Transmission Date: 20140515
  Serious: Yes (Death, Life-Threatening)
  Sender: FDA-Public Use
  Company Number: CN-CELGENEUS-035-21880-13070800

PATIENT
  Age: 75 Year
  Sex: Male

DRUGS (3)
  1. REVLIMID [Suspect]
     Indication: PLASMA CELL MYELOMA
     Dosage: D1-21
     Route: 048
     Dates: start: 20130528
  2. REVLIMID [Suspect]
     Dosage: D1-21
     Route: 048
     Dates: start: 20130705, end: 20130706
  3. DEXAMETHASONE [Suspect]
     Indication: PLASMA CELL MYELOMA
     Route: 065
     Dates: start: 20130528

REACTIONS (3)
  - Infection [Not Recovered/Not Resolved]
  - Ascites [Not Recovered/Not Resolved]
  - Plasma cell myeloma [Fatal]
